FAERS Safety Report 24572287 (Version 1)
Quarter: 2024Q4

REPORT INFORMATION
  Report Type: Spontaneous
  Country: US (occurrence: None)
  Receive Date: 20241101
  Receipt Date: 20241101
  Transmission Date: 20250114
  Serious: No
  Sender: Public
  Company Number: None

PATIENT
  Age: 37 Year
  Sex: Female
  Weight: 62.2 kg

DRUGS (2)
  1. CARBOPLATIN [Suspect]
     Active Substance: CARBOPLATIN
     Dates: end: 20240905
  2. TAXOL [Suspect]
     Active Substance: PACLITAXEL
     Dates: end: 20240905

REACTIONS (2)
  - SARS-CoV-2 antibody test positive [None]
  - Tachycardia [None]

NARRATIVE: CASE EVENT DATE: 20240918
